FAERS Safety Report 16929292 (Version 1)
Quarter: 2019Q4

REPORT INFORMATION
  Report Type: Spontaneous
  Country: ES (occurrence: ES)
  Receive Date: 20191017
  Receipt Date: 20191017
  Transmission Date: 20200122
  Serious: Yes (Life-Threatening, Hospitalization)
  Sender: FDA-Public Use
  Company Number: ES-ACCORD-158044

PATIENT
  Age: 77 Year
  Sex: Female

DRUGS (2)
  1. GEMCITABINE/GEMCITABINE HYDROCHLORIDE [Suspect]
     Active Substance: GEMCITABINE\GEMCITABINE HYDROCHLORIDE
     Indication: TRANSITIONAL CELL CARCINOMA
     Dosage: 2500 MG /M2 EVERY 14 DAYS (3900 MG EVERY 14 DAYS)
     Route: 042
     Dates: start: 20190820, end: 20190903
  2. CARBOPLATIN. [Suspect]
     Active Substance: CARBOPLATIN
     Indication: TRANSITIONAL CELL CARCINOMA
     Dosage: 3 EVERY 14 DAYS (150 MG EVERY 14 DAYS)
     Route: 042
     Dates: start: 20190820, end: 20190903

REACTIONS (7)
  - Metabolic acidosis [Recovered/Resolved]
  - Hyperkalaemia [Recovered/Resolved]
  - Acute kidney injury [Recovered/Resolved]
  - Off label use [Unknown]
  - Vomiting [Recovered/Resolved]
  - Anaemia [Recovered/Resolved]
  - Thrombocytopenia [Recovered/Resolved]

NARRATIVE: CASE EVENT DATE: 20190907
